FAERS Safety Report 15447968 (Version 6)
Quarter: 2021Q1

REPORT INFORMATION
  Report Type: Spontaneous
  Country: US (occurrence: US)
  Receive Date: 20180928
  Receipt Date: 20210113
  Transmission Date: 20210419
  Serious: Yes (Congenital Anomaly, Other)
  Sender: FDA-Public Use
  Company Number: US-TEVA-2018-US-958401

PATIENT
  Age: 57 Year
  Sex: Female

DRUGS (1)
  1. PROAIR HFA [Suspect]
     Active Substance: ALBUTEROL SULFATE
     Indication: ASTHMA
     Route: 065

REACTIONS (8)
  - Wheelchair user [Unknown]
  - Paralysis [Unknown]
  - Intracranial aneurysm [Unknown]
  - Cerebrovascular accident [Unknown]
  - Cytogenetic abnormality [Unknown]
  - Gait disturbance [Unknown]
  - Asthma [Unknown]
  - Surgery [Unknown]

NARRATIVE: CASE EVENT DATE: 1987
